FAERS Safety Report 6912076-8 (Version None)
Quarter: 2010Q3

REPORT INFORMATION
  Report Type: 
  Country: None (occurrence: None)
  Receive Date: 20100806
  Receipt Date: 20071109
  Transmission Date: 20110219
  Serious: No
  Sender: FDA-Public Use
  Company Number: US-PFIZER INC-2007095620

PATIENT
  Sex: Female
  Weight: 72.727 kg

DRUGS (3)
  1. DETROL LA [Suspect]
     Indication: INCONTINENCE
     Dates: start: 20071101
  2. PREVACID [Concomitant]
     Indication: GASTROOESOPHAGEAL REFLUX DISEASE
  3. ALLEGRA D 24 HOUR [Concomitant]
     Indication: HYPERSENSITIVITY

REACTIONS (2)
  - CONSTIPATION [None]
  - HEADACHE [None]
